FAERS Safety Report 5944735-8 (Version None)
Quarter: 2008Q4

REPORT INFORMATION
  Report Type: 
  Country: None (occurrence: None)
  Receive Date: 20081021
  Receipt Date: 20080324
  Transmission Date: 20090506
  Serious: Yes (Other)
  Sender: FDA-Public Use
  Company Number: US-WYE-H03283008

PATIENT
  Age: 79 Year
  Sex: Female

DRUGS (2)
  1. PREMARIN [Suspect]
     Dosage: 0.3 MG 1X PER 1 DAY, ORAL
     Route: 048
     Dates: start: 19690101, end: 20030101
  2. PREMARIN [Suspect]

REACTIONS (1)
  - BREAST CANCER [None]
